FAERS Safety Report 11804832 (Version 1)
Quarter: 2015Q4

REPORT INFORMATION
  Report Type: Spontaneous
  Country: FR (occurrence: FR)
  Receive Date: 20151205
  Receipt Date: 20151205
  Transmission Date: 20160305
  Serious: Yes (Other)
  Sender: FDA-Public Use
  Company Number: FR-ASTRAZENECA-2015SF20590

PATIENT
  Age: 24685 Day
  Sex: Female

DRUGS (8)
  1. PARIET [Suspect]
     Active Substance: RABEPRAZOLE SODIUM
     Route: 048
  2. KARDEGIC [Concomitant]
     Active Substance: ASPIRIN LYSINE
  3. BISOPROLOL [Concomitant]
     Active Substance: BISOPROLOL
  4. METFORMIN [Concomitant]
     Active Substance: METFORMIN HYDROCHLORIDE
  5. LOSARTAN. [Concomitant]
     Active Substance: LOSARTAN
  6. CRESTOR [Concomitant]
     Active Substance: ROSUVASTATIN CALCIUM
  7. INEXIUM [Suspect]
     Active Substance: ESOMEPRAZOLE
     Route: 048
     Dates: start: 201210, end: 20151014
  8. ALDACTONE [Concomitant]
     Active Substance: SPIRONOLACTONE

REACTIONS (7)
  - Hypokalaemia [Not Recovered/Not Resolved]
  - Hypocalcaemia [Unknown]
  - Thyroid neoplasm [Unknown]
  - Hypophosphataemia [Unknown]
  - Hypomagnesaemia [Recovering/Resolving]
  - Seizure [Recovered/Resolved]
  - Chondrocalcinosis [Recovered/Resolved with Sequelae]

NARRATIVE: CASE EVENT DATE: 201209
